FAERS Safety Report 8294064-5 (Version None)
Quarter: 2012Q2

REPORT INFORMATION
  Report Type: 
  Country: None (occurrence: None)
  Receive Date: 20120418
  Receipt Date: 20120409
  Transmission Date: 20120825
  Serious: Yes (Other)
  Sender: FDA-Public Use
  Company Number: US-US-EMD SERONO, INC.-7117831

PATIENT
  Sex: Female
  Weight: 102 kg

DRUGS (5)
  1. REBIF [Suspect]
     Indication: MULTIPLE SCLEROSIS
     Route: 058
     Dates: start: 20090101
  2. TOPAMAX [Suspect]
     Indication: MIGRAINE
     Dates: start: 20050101
  3. VERAPAMIL [Concomitant]
     Indication: MIGRAINE
  4. GABAPENTIN [Concomitant]
     Indication: MIGRAINE
     Dates: start: 20050101
  5. AMITRIPTYLINE HCL [Concomitant]
     Indication: MIGRAINE
     Dates: start: 20050101

REACTIONS (7)
  - NEPHROLITHIASIS [None]
  - INJECTION SITE ERYTHEMA [None]
  - INJECTION SITE SWELLING [None]
  - INJECTION SITE DISCHARGE [None]
  - NASOPHARYNGITIS [None]
  - SKIN DISCOLOURATION [None]
  - INJECTION SITE PAIN [None]
